FAERS Safety Report 5789893-3 (Version None)
Quarter: 2008Q2

REPORT INFORMATION
  Report Type: 
  Country: None (occurrence: None)
  Receive Date: 20080626
  Receipt Date: 20080623
  Transmission Date: 20081010
  Serious: Yes (Death)
  Sender: FDA-Public Use
  Company Number: US-BRISTOL-MYERS SQUIBB COMPANY-14227003

PATIENT
  Age: 55 Year
  Sex: Male

DRUGS (8)
  1. ERBITUX [Suspect]
     Indication: COLON CANCER
     Dosage: APPROXIMATELY (APP) 9-10 DOSES, WITH APP 2 DOSES/MONTH;WITHDRAWN 3 WEEKS PRIOR TO DEATH.
     Route: 042
     Dates: start: 20071201
  2. AVASTIN [Suspect]
  3. CAMPTOSAR [Suspect]
  4. LEUCOVORIN CALCIUM [Concomitant]
  5. FLUOROURACIL [Concomitant]
  6. OXALIPLATIN [Concomitant]
     Dosage: ALTERNATING
  7. DIPHENHYDRAMINE HCL [Concomitant]
     Indication: PREMEDICATION
  8. TPN [Concomitant]

REACTIONS (2)
  - COLON CANCER METASTATIC [None]
  - RENAL FAILURE [None]
